FAERS Safety Report 5233996-9 (Version None)
Quarter: 2007Q1

REPORT INFORMATION
  Report Type: 
  Country: None (occurrence: None)
  Receive Date: 20070208
  Receipt Date: 20070125
  Transmission Date: 20070707
  Serious: Yes (Disabling)
  Sender: FDA-Public Use
  Company Number: US-ELI_LILLY_AND_COMPANY-US200701004817

PATIENT
  Age: 60 Year
  Sex: Male

DRUGS (3)
  1. HUMALOG [Suspect]
     Indication: DIABETES MELLITUS
  2. LANTUS [Concomitant]
     Indication: DIABETES MELLITUS
  3. NOVOLOG [Concomitant]
     Indication: DIABETES MELLITUS
     Dates: start: 20061201, end: 20070101

REACTIONS (1)
  - BACK DISORDER [None]
